FAERS Safety Report 7676721-4 (Version None)
Quarter: 2011Q3

REPORT INFORMATION
  Report Type: 
  Country: None (occurrence: None)
  Receive Date: 20110805
  Receipt Date: 20110721
  Transmission Date: 20111222
  Serious: Yes (Hospitalization)
  Sender: FDA-Public Use
  Company Number: 2011MA009269

PATIENT
  Age: 80 Year
  Sex: Female

DRUGS (3)
  1. NICERGOLINE (NICERGOLINE) [Suspect]
     Indication: DEMENTIA
     Dosage: 15 MG; BID
  2. DILTIAZEM HCL [Suspect]
     Indication: HYPERTENSION
     Dosage: 60 MG; QD
  3. SIMVASTATIN [Suspect]
     Indication: TYPE IIA HYPERLIPIDAEMIA
     Dosage: 40 MG; QD

REACTIONS (11)
  - ALANINE AMINOTRANSFERASE INCREASED [None]
  - MUSCULAR WEAKNESS [None]
  - BLOOD LACTATE DEHYDROGENASE INCREASED [None]
  - RENAL IMPAIRMENT [None]
  - BLOOD CREATINE PHOSPHOKINASE INCREASED [None]
  - DRUG INTERACTION [None]
  - BLOOD CREATININE INCREASED [None]
  - MYOPATHY [None]
  - GLOMERULAR FILTRATION RATE DECREASED [None]
  - BLOOD UREA INCREASED [None]
  - BLOOD THYROID STIMULATING HORMONE INCREASED [None]
